FAERS Safety Report 15281155 (Version 1)
Quarter: 2018Q3

REPORT INFORMATION
  Report Type: Spontaneous
  Country: BE (occurrence: BE)
  Receive Date: 20180815
  Receipt Date: 20180815
  Transmission Date: 20181010
  Serious: Yes (Disabling)
  Sender: FDA-Public Use
  Company Number: BE-ALLERGAN-1839743US

PATIENT
  Sex: Female

DRUGS (1)
  1. TRYPLERA [Suspect]
     Active Substance: BISMUTH SUBCITRATE POTASSIUM\METRONIDAZOLE\TETRACYCLINE HYDROCHLORIDE
     Indication: PRODUCT USED FOR UNKNOWN INDICATION
     Dosage: UNK
     Route: 065

REACTIONS (10)
  - Migraine [Unknown]
  - Nausea [Unknown]
  - Muscle spasms [Unknown]
  - Vomiting [Unknown]
  - Dysgeusia [Unknown]
  - Asthenia [Unknown]
  - Abdominal pain upper [Unknown]
  - Arthralgia [Unknown]
  - Tongue discolouration [Unknown]
  - Tremor [Unknown]
